FAERS Safety Report 10238726 (Version 1)
Quarter: 2014Q2

REPORT INFORMATION
  Report Type: Spontaneous
  Country: US (occurrence: None)
  Receive Date: 20140613
  Receipt Date: 20140613
  Transmission Date: 20141212
  Serious: No
  Sender: FDA-Public Use
  Company Number: None

PATIENT
  Age: 86 Year
  Sex: Female

DRUGS (1)
  1. TYGACIL [Suspect]
     Indication: CYSTITIS
     Route: 043
     Dates: start: 201405

REACTIONS (1)
  - Off label use [None]
